FAERS Safety Report 7115342-9 (Version None)
Quarter: 2010Q4

REPORT INFORMATION
  Report Type: 
  Country: None (occurrence: None)
  Receive Date: 20101122
  Receipt Date: 20101116
  Transmission Date: 20110411
  Serious: Yes (Life-Threatening, Hospitalization)
  Sender: FDA-Public Use
  Company Number: DE-BRISTOL-MYERS SQUIBB COMPANY-15383524

PATIENT
  Age: 70 Year
  Sex: Male

DRUGS (4)
  1. CETUXIMAB [Suspect]
     Indication: OESOPHAGEAL CARCINOMA
     Dosage: RECENT INF ON 05NOV2010.
     Route: 042
     Dates: start: 20101016, end: 20101105
  2. CISPLATIN [Suspect]
     Indication: OESOPHAGEAL CARCINOMA
     Route: 042
     Dates: start: 20101016, end: 20101016
  3. CARBOPLATIN [Suspect]
     Indication: OESOPHAGEAL CARCINOMA
     Dosage: 1DF= AUC 6, 350MG
     Route: 042
     Dates: start: 20101105, end: 20101105
  4. DOCETAXEL [Suspect]
     Indication: OESOPHAGEAL CARCINOMA
     Dosage: RECENT INF ON 05NOV2010.
     Route: 042
     Dates: start: 20101016, end: 20101105

REACTIONS (2)
  - DUODENAL ULCER HAEMORRHAGE [None]
  - UPPER GASTROINTESTINAL HAEMORRHAGE [None]
